FAERS Safety Report 16688056 (Version 1)
Quarter: 2019Q3

REPORT INFORMATION
  Report Type: Spontaneous
  Country: US (occurrence: US)
  Receive Date: 20190809
  Receipt Date: 20190809
  Transmission Date: 20191004
  Serious: No
  Sender: FDA-Public Use
  Company Number: US-BAYER-2019-146863

PATIENT
  Age: 53 Year
  Sex: Female

DRUGS (1)
  1. GADAVIST [Suspect]
     Active Substance: GADOBUTROL
     Indication: NUCLEAR MAGNETIC RESONANCE IMAGING
     Dosage: UNK UNK, ONCE
     Route: 042
     Dates: start: 20190731, end: 20190731

REACTIONS (5)
  - Pruritus [Recovering/Resolving]
  - Swelling [None]
  - Burning sensation [None]
  - Paraesthesia [Recovering/Resolving]
  - Urticaria [None]

NARRATIVE: CASE EVENT DATE: 20190731
